FAERS Safety Report 8245418-4 (Version None)
Quarter: 2012Q1

REPORT INFORMATION
  Report Type: 
  Country: None (occurrence: None)
  Receive Date: 20120329
  Receipt Date: 20120314
  Transmission Date: 20120608
  Serious: Yes (Other)
  Sender: FDA-Public Use
  Company Number: CHPA2012US005138

PATIENT
  Sex: Female

DRUGS (3)
  1. LAMISIL AT [Suspect]
     Indication: PSORIATIC ARTHROPATHY
     Dosage: UNK, 2-3 TIMES A DAY
     Route: 061
     Dates: start: 20100101
  2. DRUG THERAPY NOS [Concomitant]
     Indication: PSORIATIC ARTHROPATHY
     Dosage: UNK
  3. LAMISIL [Suspect]
     Indication: PSORIATIC ARTHROPATHY
     Dosage: UNK, 1 TUBE PER WEEK
     Route: 061
     Dates: start: 20090101, end: 20100101

REACTIONS (7)
  - OFF LABEL USE [None]
  - SKIN HAEMORRHAGE [None]
  - DRUG ADMINISTERED AT INAPPROPRIATE SITE [None]
  - THERAPEUTIC RESPONSE UNEXPECTED [None]
  - ACCIDENTAL EXPOSURE [None]
  - PSORIATIC ARTHROPATHY [None]
  - RASH PUSTULAR [None]
